FAERS Safety Report 7746915-8 (Version None)
Quarter: 2011Q3

REPORT INFORMATION
  Report Type: 
  Country: None (occurrence: None)
  Receive Date: 20110913
  Receipt Date: 20110830
  Transmission Date: 20111222
  Serious: Yes (Other)
  Sender: FDA-Public Use
  Company Number: PHHY2011JP76596

PATIENT
  Age: 46 Year
  Sex: Male

DRUGS (5)
  1. BENIDIPINE HYDROCHLORIDE [Concomitant]
     Dosage: 4 MG, UNK
  2. DIOVAN [Suspect]
     Indication: HYPERTENSION
     Dosage: UNK
     Route: 048
  3. ANTIHYPERTENSIVE DRUGS [Concomitant]
  4. TOWAMIN [Concomitant]
     Dosage: 50 MG, UNK
     Route: 048
  5. EXFORGE [Suspect]
     Dosage: 1 DF, UNK
     Route: 048
     Dates: start: 20110723

REACTIONS (1)
  - EPISTAXIS [None]
